FAERS Safety Report 10182589 (Version 1)
Quarter: 2014Q2

REPORT INFORMATION
  Report Type: Spontaneous
  Country: US (occurrence: None)
  Receive Date: 20140519
  Receipt Date: 20140519
  Transmission Date: 20141212
  Serious: Yes (Other)
  Sender: FDA-Public Use
  Company Number: None

PATIENT
  Age: 61 Year
  Sex: 0

DRUGS (7)
  1. LEVAQUIN [Suspect]
     Indication: RESPIRATORY TRACT INFECTION
     Dosage: TAKEN BY MOUTH
     Dates: start: 20130521, end: 20130531
  2. PRAVASTATIN [Concomitant]
  3. SYNTHROID [Concomitant]
  4. DEXILANT [Concomitant]
  5. ASPIRIN [Concomitant]
  6. BIOTIN [Concomitant]
  7. MULTI VITAMIN [Concomitant]

REACTIONS (4)
  - Arthralgia [None]
  - Vitreous detachment [None]
  - Detachment of macular retinal pigment epithelium [None]
  - Alopecia [None]
